FAERS Safety Report 15625055 (Version 2)
Quarter: 2019Q1

REPORT INFORMATION
  Report Type: Report from Study
  Country: ZA (occurrence: ZA)
  Receive Date: 20181116
  Receipt Date: 20190304
  Transmission Date: 20190417
  Serious: Yes (Hospitalization, Other)
  Sender: FDA-Public Use
  Company Number: PHHY2014ZA041492

PATIENT
  Sex: Female

DRUGS (14)
  1. NITROLINGUAL [Concomitant]
     Active Substance: NITROGLYCERIN
     Indication: CARDIAC DISORDER
     Dosage: UNK
     Route: 065
  2. WARFARIN [Concomitant]
     Active Substance: WARFARIN
     Indication: ANTICOAGULANT THERAPY
  3. PANTOLOC [Concomitant]
     Active Substance: PANTOPRAZOLE SODIUM
     Indication: CARDIAC DISORDER
     Dosage: UNK
     Route: 065
  4. ACLASTA [Suspect]
     Active Substance: ZOLEDRONIC ACID
     Dosage: 1 DF (5 MG/100 ML), Q12MO
     Route: 042
     Dates: start: 2016
  5. ECOTRIN [Concomitant]
     Active Substance: ASPIRIN
     Indication: CARDIAC DISORDER
     Dosage: UNK
     Route: 065
  6. ACLASTA [Suspect]
     Active Substance: ZOLEDRONIC ACID
     Dosage: 1 DF (5 MG/100 ML), Q12MO
     Route: 042
     Dates: start: 201212
  7. ACLASTA [Suspect]
     Active Substance: ZOLEDRONIC ACID
     Dosage: 1 DF (5 MG/100 ML), Q12MO
     Route: 042
     Dates: start: 2017
  8. LANOXIN [Concomitant]
     Active Substance: DIGOXIN
     Indication: CARDIAC DISORDER
     Dosage: UNK
     Route: 065
  9. CRESTOR [Concomitant]
     Active Substance: ROSUVASTATIN CALCIUM
     Indication: CARDIAC DISORDER
     Dosage: UNK
     Route: 065
  10. ACLASTA [Suspect]
     Active Substance: ZOLEDRONIC ACID
     Dosage: 1 DF (5 MG/100 ML), Q12MO
     Route: 042
     Dates: start: 2015
  11. WARFARIN [Concomitant]
     Active Substance: WARFARIN
     Indication: CARDIAC DISORDER
     Dosage: UNK
     Route: 065
  12. ACLASTA [Suspect]
     Active Substance: ZOLEDRONIC ACID
     Indication: OSTEOPOROSIS
     Dosage: 1 DF (5 MG/100 ML), Q12MO
     Route: 042
     Dates: start: 2011
  13. ACLASTA [Suspect]
     Active Substance: ZOLEDRONIC ACID
     Dosage: 1 DF (5 MG/100 ML), Q12MO
     Route: 042
     Dates: start: 2014
  14. CONCOR [Concomitant]
     Active Substance: BISOPROLOL FUMARATE
     Indication: CARDIAC DISORDER
     Dosage: UNK
     Route: 065

REACTIONS (12)
  - Muscle rupture [Recovered/Resolved]
  - Non-alcoholic fatty liver [Unknown]
  - Back pain [Unknown]
  - Hiatus hernia [Recovered/Resolved]
  - Bone density abnormal [Unknown]
  - Gallbladder enlargement [Unknown]
  - Malaise [Unknown]
  - Injury [Unknown]
  - Abdominal hernia [Recovered/Resolved]
  - Intestinal prolapse [Recovered/Resolved]
  - Cardiac arrest [Unknown]
  - Cardiac valve disease [Unknown]
